FAERS Safety Report 8427331-2 (Version None)
Quarter: 2012Q2

REPORT INFORMATION
  Report Type: 
  Country: None (occurrence: None)
  Receive Date: 20120611
  Receipt Date: 20120607
  Transmission Date: 20120825
  Serious: Yes (Death, Hospitalization)
  Sender: FDA-Public Use
  Company Number: US-CELGENEUS-163-20785-12042307

PATIENT
  Sex: Female

DRUGS (15)
  1. THALOMID [Suspect]
     Indication: MULTIPLE MYELOMA
     Dosage: 50 MILLIGRAM
     Route: 048
     Dates: start: 20100904, end: 20110601
  2. NAPROXEN (ALEVE) [Concomitant]
     Dosage: 220 MILLIGRAM
     Route: 048
  3. DIFLUCAN [Concomitant]
     Dosage: 100 MILLIGRAM
     Route: 048
  4. ZOFRAN [Concomitant]
     Dosage: 4 MILLIGRAM
     Route: 048
  5. LOPRESSOR [Concomitant]
     Dosage: 100 MILLIGRAM
     Route: 048
  6. MULTI-VITAMINS [Concomitant]
     Route: 048
  7. LEVAQUIN [Concomitant]
     Dosage: 250 MILLIGRAM
     Route: 048
  8. NITROGLYCERIN [Concomitant]
     Dosage: .4 MILLIGRAM
     Route: 060
  9. PERCOCET [Concomitant]
     Dosage: 5-325MG
     Route: 048
  10. AVAPRO [Concomitant]
     Dosage: 150 MILLIGRAM
     Route: 048
  11. COMBIVENT [Concomitant]
     Route: 055
  12. PREDNISONE PAK [Concomitant]
     Dosage: 5 MILLIGRAM
     Route: 065
  13. PRILOSEC [Concomitant]
     Dosage: 10 MILLIGRAM
     Route: 048
  14. CALCIUM/VIT D [Concomitant]
     Dosage: 500
     Route: 048
  15. VALTREX [Concomitant]
     Dosage: 1 GRAM
     Route: 048

REACTIONS (2)
  - CARDIOPULMONARY FAILURE [None]
  - PNEUMONIA [None]
